FAERS Safety Report 9290884 (Version 1)
Quarter: 2013Q2

REPORT INFORMATION
  Report Type: Spontaneous
  Country: FR (occurrence: FR)
  Receive Date: 20130515
  Receipt Date: 20130515
  Transmission Date: 20140414
  Serious: Yes (Other)
  Sender: FDA-Public Use
  Company Number: FR-PFIZER INC-2005098547

PATIENT
  Age: 30 Year
  Sex: Male

DRUGS (10)
  1. EUPANTOL [Suspect]
     Indication: PROPHYLAXIS
     Dosage: 40 MG, 1X/DAY
     Route: 042
     Dates: start: 20050609, end: 20050701
  2. TARGOCID [Suspect]
     Dosage: 1.2 G, 1X/DAY
     Route: 065
     Dates: start: 20050622, end: 20050623
  3. TARGOCID [Suspect]
     Dosage: 0.6 G, 1X/DAY
     Route: 065
     Dates: start: 20050624, end: 20050625
  4. HYPNOVEL [Concomitant]
     Route: 042
     Dates: start: 20050609, end: 20050705
  5. ULTIVA [Concomitant]
     Route: 042
     Dates: start: 20050609, end: 20050705
  6. VECTARION [Concomitant]
     Route: 042
     Dates: start: 20050609, end: 20050710
  7. CETORNAN [Concomitant]
     Route: 048
     Dates: start: 20050609, end: 20050710
  8. LEVOCARNIL [Concomitant]
     Route: 048
     Dates: start: 20050609, end: 20050710
  9. LOVENOX [Concomitant]
     Route: 058
  10. SUBUTEX [Concomitant]
     Route: 065

REACTIONS (1)
  - Pancytopenia [Recovered/Resolved]
